FAERS Safety Report 7565072-4 (Version None)
Quarter: 2011Q2

REPORT INFORMATION
  Report Type: 
  Country: None (occurrence: None)
  Receive Date: 20110622
  Receipt Date: 20110525
  Transmission Date: 20111010
  Serious: Yes (Other)
  Sender: FDA-Public Use
  Company Number: US-MYLANLABS-2011S1009034

PATIENT
  Age: 52 Year
  Sex: Male
  Weight: 116.58 kg

DRUGS (4)
  1. WELLBUTRIN SR [Concomitant]
  2. LOVASTATIN [Concomitant]
  3. CLOZAPINE [Suspect]
     Indication: SCHIZOPHRENIA
     Route: 048
     Dates: start: 20000925, end: 20110426
  4. PAXIL [Concomitant]

REACTIONS (1)
  - GRANULOCYTOPENIA [None]
